FAERS Safety Report 7308492-5 (Version None)
Quarter: 2011Q1

REPORT INFORMATION
  Report Type: 
  Country: None (occurrence: None)
  Receive Date: 20110210
  Receipt Date: 20110128
  Transmission Date: 20110831
  Serious: Yes (Hospitalization)
  Sender: FDA-Public Use
  Company Number: 2011000517

PATIENT
  Age: 72 Year
  Sex: Female

DRUGS (7)
  1. METFORMIN (METFORMIN) [Concomitant]
  2. NYSTATIN [Concomitant]
  3. ERLOTINIB (ERLOTINIB) (TABLET) (ERLOTINIB) [Suspect]
     Indication: NON-SMALL CELL LUNG CANCER
     Dosage: (150 MG,QD),ORAL
     Route: 048
     Dates: start: 20101217, end: 20110111
  4. HYDROXYCHLOROQUINE (HYDROXYCHLOROQUINE) [Suspect]
     Dosage: (800 MG,QD)
     Dates: start: 20101217, end: 20110111
  5. GUAIFENESIN [Concomitant]
  6. ATIVAN [Concomitant]
  7. SYNTHROID [Concomitant]

REACTIONS (7)
  - LOCAL SWELLING [None]
  - SUBCUTANEOUS EMPHYSEMA [None]
  - DYSPHONIA [None]
  - COLLAPSE OF LUNG [None]
  - ATELECTASIS [None]
  - PNEUMOTHORAX [None]
  - DYSPHAGIA [None]
